FAERS Safety Report 4553265-X (Version None)
Quarter: 2005Q1

REPORT INFORMATION
  Report Type: 
  Country: None (occurrence: None)
  Receive Date: 20050113
  Receipt Date: 20041230
  Transmission Date: 20050727
  Serious: Yes (Death, Hospitalization)
  Sender: FDA-Public Use
  Company Number: 2005-0007889

PATIENT
  Age: 41 Year
  Sex: Male
  Weight: 62 kg

DRUGS (3)
  1. VIREAD [Suspect]
     Indication: HIV INFECTION
     Dosage: 245 MG, 1 IN 1 D, ORAL
     Route: 048
     Dates: start: 20040810, end: 20040823
  2. SUSTIVA [Suspect]
     Indication: HIV INFECTION
     Dosage: 600 MG, 1 IN 1 D, ORAL
     Route: 048
     Dates: start: 20040810
  3. KALETRA [Suspect]
     Indication: HIV INFECTION
     Dosage: 4 DOSAGE FORMS, 2 IN 1 D
     Dates: start: 20040810

REACTIONS (7)
  - ARTHROPATHY [None]
  - GLUCOSE URINE [None]
  - HYPOPHOSPHATAEMIA [None]
  - PROTEINURIA [None]
  - RENAL FAILURE [None]
  - RENAL TUBULAR DISORDER [None]
  - SUBDURAL HAEMATOMA [None]
